FAERS Safety Report 18442046 (Version 2)
Quarter: 2020Q4

REPORT INFORMATION
  Report Type: Spontaneous
  Country: US (occurrence: US)
  Receive Date: 20201029
  Receipt Date: 20201110
  Transmission Date: 20210114
  Serious: No
  Sender: FDA-Public Use
  Company Number: NVSC2020US290290

PATIENT
  Age: 83 Year
  Sex: Female

DRUGS (2)
  1. VOLTAREN [Suspect]
     Active Substance: DICLOFENAC SODIUM
     Indication: PAIN IN EXTREMITY
  2. VOLTAREN [Suspect]
     Active Substance: DICLOFENAC SODIUM
     Indication: ARTHRITIS
     Dosage: UNK UNK, TID
     Route: 065

REACTIONS (7)
  - Product use issue [Unknown]
  - Feeling hot [Not Recovered/Not Resolved]
  - Incorrect product administration duration [Unknown]
  - Peripheral swelling [Recovered/Resolved]
  - Hypoaesthesia [Recovered/Resolved]
  - Musculoskeletal stiffness [Unknown]
  - Extra dose administered [Unknown]

NARRATIVE: CASE EVENT DATE: 20201020
